FAERS Safety Report 22961559 (Version 2)
Quarter: 2023Q4

REPORT INFORMATION
  Report Type: Spontaneous
  Country: DE (occurrence: DE)
  Receive Date: 20230920
  Receipt Date: 20231006
  Transmission Date: 20240109
  Serious: Yes (Hospitalization, Other)
  Sender: FDA-Public Use
  Company Number: DE-SA-2023SA272867

PATIENT
  Age: 42 Year
  Sex: Male

DRUGS (11)
  1. METAMIZOLE [Suspect]
     Active Substance: METAMIZOLE
     Indication: Pain
     Dosage: 10 DROPS
     Route: 065
     Dates: start: 201707, end: 20170709
  2. QUETIAPINE [Concomitant]
     Active Substance: QUETIAPINE
     Indication: Depression
     Dates: start: 20170612, end: 20170709
  3. VITAMIN D NOS [Concomitant]
     Active Substance: VITAMIN D NOS
     Indication: Supplementation therapy
     Dates: start: 20170612, end: 20170709
  4. ENOXAPARIN SODIUM [Concomitant]
     Active Substance: ENOXAPARIN SODIUM
     Indication: Anticoagulant therapy
     Dates: start: 20170706, end: 20170709
  5. HYDROMORPHONE [Concomitant]
     Active Substance: HYDROMORPHONE
     Indication: Pain
     Dates: start: 20170706, end: 20170709
  6. TRIMIPRAMINE [Concomitant]
     Active Substance: TRIMIPRAMINE
     Indication: Depression
     Dates: start: 20170612, end: 20170709
  7. INSULIN HUMAN [Concomitant]
     Active Substance: INSULIN HUMAN
     Indication: Type 2 diabetes mellitus
     Dates: start: 20170706, end: 20170709
  8. FOLIC ACID [Concomitant]
     Active Substance: FOLIC ACID
     Indication: Supplementation therapy
     Dates: start: 20170612, end: 20170709
  9. MOXIFLOXACIN [Concomitant]
     Active Substance: MOXIFLOXACIN
     Indication: Prophylaxis
     Dates: start: 20170706, end: 20170709
  10. INSULIN GLARGINE [Concomitant]
     Active Substance: INSULIN GLARGINE
     Indication: Type 2 diabetes mellitus
     Dates: start: 20170612, end: 20170709
  11. CHLORPROTHIXENE [Concomitant]
     Active Substance: CHLORPROTHIXENE
     Dates: start: 20170612, end: 20170709

REACTIONS (8)
  - Generalised bullous fixed drug eruption [Recovering/Resolving]
  - Pruritus [Recovering/Resolving]
  - Vertigo [Recovering/Resolving]
  - Pyrexia [Recovering/Resolving]
  - Hypotension [Recovering/Resolving]
  - Tachycardia [Recovering/Resolving]
  - Blister [Recovering/Resolving]
  - Accidental exposure to product [Unknown]

NARRATIVE: CASE EVENT DATE: 20170709
